FAERS Safety Report 5971301-0 (Version None)
Quarter: 2008Q4

REPORT INFORMATION
  Report Type: 
  Country: None (occurrence: None)
  Receive Date: 20081128
  Receipt Date: 20081118
  Transmission Date: 20090506
  Serious: Yes (Hospitalization)
  Sender: FDA-Public Use
  Company Number: AU-PFIZER INC-2008098399

PATIENT
  Age: 66 Year
  Sex: Male

DRUGS (2)
  1. CHAMPIX [Suspect]
  2. DRUG, UNSPECIFIED [Concomitant]

REACTIONS (1)
  - FEELING ABNORMAL [None]
